FAERS Safety Report 10037947 (Version 1)
Quarter: 2014Q1

REPORT INFORMATION
  Report Type: Spontaneous
  Country: US (occurrence: None)
  Receive Date: 20140306
  Receipt Date: 20140306
  Transmission Date: 20141002
  Serious: Yes (Other)
  Sender: FDA-Public Use
  Company Number: 163-21880-13043728

PATIENT
  Age: 74 Year
  Sex: Male

DRUGS (12)
  1. REVLIMID (LENALIDOMIDE) (10 MILLIGRAM, CAPSULES) [Suspect]
     Indication: PLASMA CELL MYELOMA
     Route: 048
     Dates: start: 20100901
  2. ACYCLOVIR (ACICLOVIR) (ACICLOVIR) [Concomitant]
  3. DEXAMETHASONE (DEXAMETHASONE) [Concomitant]
  4. FISH OIL OMEGA-3 (FISH OIL) [Concomitant]
  5. FOLIC ACID (FOLIC ACID) [Concomitant]
  6. HYDROCHLOROTHIAZIDE (HYDROCHLOROTHIAZIDE) [Concomitant]
  7. LEVITRA (VARDENAFIL HYDROCHLORIDE) [Concomitant]
  8. MONOPRIL (FOSINOPRIL SODIUM) [Concomitant]
  9. MULTIVITAMINS (MULTIVITAMINS) [Concomitant]
  10. WARFARIN SODIUM (WARFARIN SODIUM) [Concomitant]
  11. ZOCOR (SIMVASTATIN) [Concomitant]
  12. ALBUTEROL (SALBUTAMOL) [Concomitant]

REACTIONS (1)
  - Thrombosis [None]
